FAERS Safety Report 7604513-0 (Version None)
Quarter: 2011Q3

REPORT INFORMATION
  Report Type: 
  Country: None (occurrence: None)
  Receive Date: 20110712
  Receipt Date: 20110627
  Transmission Date: 20111222
  Serious: No
  Sender: FDA-Public Use
  Company Number: US-B.I. PHARMACEUTICALS,INC./RIDGEFIELD-2011-BP-16393BP

PATIENT
  Age: 90 Year
  Sex: Female

DRUGS (8)
  1. PRADAXA [Suspect]
     Indication: ATRIAL FIBRILLATION
     Dosage: 150 MG
     Route: 048
     Dates: start: 20110401
  2. PROBIOTIC [Concomitant]
     Indication: VULVOVAGINAL MYCOTIC INFECTION
  3. YEAST PILLS [Concomitant]
     Indication: VULVOVAGINAL MYCOTIC INFECTION
  4. LOSARTAN POTASSIUM [Concomitant]
     Indication: HYPERTENSION
  5. AMIODARONE HCL [Concomitant]
     Indication: ATRIAL FIBRILLATION
  6. FIBER [Concomitant]
  7. YEAST CREAM [Concomitant]
     Indication: VULVOVAGINAL MYCOTIC INFECTION
  8. HYDROCHLOROTHIAZIDE [Concomitant]
     Indication: HYPERTENSION

REACTIONS (2)
  - VULVOVAGINAL MYCOTIC INFECTION [None]
  - EAR LOBE INFECTION [None]
